FAERS Safety Report 5370066-3 (Version None)
Quarter: 2007Q2

REPORT INFORMATION
  Report Type: 
  Country: None (occurrence: None)
  Receive Date: 20070613
  Receipt Date: 20060511
  Transmission Date: 20071010
  Serious: Yes (Death)
  Sender: FDA-Public Use
  Company Number: 23100316

PATIENT
  Age: 41 Year
  Sex: Male

DRUGS (12)
  1. ARGATROBAN [Suspect]
     Indication: HEPARIN-INDUCED THROMBOCYTOPENIA
     Dosage: 2 MCG/KG/MIN CONT IV
     Route: 042
     Dates: start: 20060510
  2. ARGATROBAN [Suspect]
     Indication: HEPARIN-INDUCED THROMBOCYTOPENIA
     Dosage: .5 MCG/KG/MIN CONT IV
     Route: 042
     Dates: end: 20060511
  3. HEPARIN [Concomitant]
  4. SODIUM BICARBONATE [Concomitant]
  5. LORAZEPAM [Concomitant]
  6. NOREPINEPHRINE [Concomitant]
  7. FENTANYL [Concomitant]
  8. VASOPRESSIN [Concomitant]
  9. HYDROCORTISONE [Concomitant]
  10. PANTOPRAZOLE SODIUM [Concomitant]
  11. ZOSYN [Concomitant]
  12. PEPCID [Concomitant]

REACTIONS (1)
  - SEPSIS [None]
